FAERS Safety Report 10747223 (Version 2)
Quarter: 2015Q1

REPORT INFORMATION
  Report Type: Spontaneous
  Country: RU (occurrence: RU)
  Receive Date: 20150129
  Receipt Date: 20150227
  Transmission Date: 20150721
  Serious: Yes (Hospitalization)
  Sender: FDA-Public Use
  Company Number: RU-009507513-1501RUS008797

PATIENT
  Age: 42 Year
  Sex: Female
  Weight: 165 kg

DRUGS (5)
  1. PROGYNOVA [Concomitant]
     Active Substance: ESTRADIOL VALERATE
     Dosage: .5 DF, UNK
     Dates: start: 20080426, end: 20080429
  2. DEXAMETHASONE. [Concomitant]
     Active Substance: DEXAMETHASONE
     Dosage: 0.5 DF, UNK
     Dates: start: 20080425, end: 20080429
  3. FOLLITROPIN BETA [Suspect]
     Active Substance: FOLLITROPIN
     Dosage: UNK
     Route: 058
     Dates: start: 20080419, end: 20080427
  4. ORGALUTRAN [Concomitant]
     Active Substance: GANIRELIX ACETATE
     Dosage: UNK
     Dates: start: 20080425, end: 20080429
  5. THROMBO ASS [Concomitant]
     Active Substance: ASPIRIN
     Dosage: 1 DF, UNK
     Dates: start: 20080425, end: 20080429

REACTIONS (2)
  - Ovarian hyperstimulation syndrome [Recovered/Resolved]
  - Menstrual disorder [Recovered/Resolved]

NARRATIVE: CASE EVENT DATE: 200805
